FAERS Safety Report 12155804 (Version 2)
Quarter: 2016Q1

REPORT INFORMATION
  Report Type: Spontaneous
  Country: IT (occurrence: IT)
  Receive Date: 20160307
  Receipt Date: 20160317
  Transmission Date: 20160526
  Serious: No
  Sender: FDA-Public Use
  Company Number: IT-ENDO PHARMACEUTICALS INC.-2016-001664

PATIENT
  Age: 37 Year
  Sex: Female

DRUGS (2)
  1. FROVA [Suspect]
     Active Substance: FROVATRIPTAN SUCCINATE
     Indication: HEADACHE
     Route: 048
     Dates: start: 20120330, end: 20120330
  2. FROVA [Suspect]
     Active Substance: FROVATRIPTAN SUCCINATE
     Route: 048
     Dates: start: 20120409, end: 20120409

REACTIONS (1)
  - Exposure during pregnancy [Recovered/Resolved]

NARRATIVE: CASE EVENT DATE: 20120330
